FAERS Safety Report 10927093 (Version 1)
Quarter: 2015Q1

REPORT INFORMATION
  Report Type: Spontaneous
  Country: AU (occurrence: AU)
  Receive Date: 20150318
  Receipt Date: 20150318
  Transmission Date: 20150721
  Serious: Yes (Hospitalization)
  Sender: FDA-Public Use
  Company Number: PHHY2015AU029588

PATIENT
  Age: 63 Year
  Sex: Male

DRUGS (2)
  1. VERAPAMIL [Suspect]
     Active Substance: VERAPAMIL HYDROCHLORIDE
     Indication: SUPRAVENTRICULAR TACHYCARDIA
     Dosage: 5 MG, UNK
     Route: 042
  2. SOTALOL. [Suspect]
     Active Substance: SOTALOL
     Indication: SUPRAVENTRICULAR TACHYCARDIA
     Dosage: 80 MG, UNK
     Route: 048

REACTIONS (6)
  - Tachycardia induced cardiomyopathy [Recovered/Resolved]
  - Drug ineffective [Unknown]
  - Hypotension [Recovered/Resolved]
  - Left ventricular failure [Recovered/Resolved]
  - Sinus bradycardia [Recovered/Resolved]
  - Cardiogenic shock [Recovered/Resolved]
